FAERS Safety Report 4869980-4 (Version None)
Quarter: 2005Q4

REPORT INFORMATION
  Report Type: 
  Country: None (occurrence: None)
  Receive Date: 20051223
  Receipt Date: 20051214
  Transmission Date: 20060501
  Serious: Yes (Death, Hospitalization)
  Sender: FDA-Public Use
  Company Number: 2005BI022160

PATIENT
  Age: 74 Year
  Sex: Male

DRUGS (11)
  1. ZEVALIN [Suspect]
     Indication: NON-HODGKIN'S LYMPHOMA
     Dosage: X1; IV
     Route: 042
     Dates: start: 20040101, end: 20040101
  2. ZEVALIN [Suspect]
  3. ZEVALIN [Suspect]
     Indication: NON-HODGKIN'S LYMPHOMA
     Dosage: 32 MCI;1X;IV
     Route: 042
     Dates: start: 20040120, end: 20040120
  4. ZEVALIN [Suspect]
  5. RITUXIMAB [Concomitant]
  6. CYCLOPHOSPHAMIDE [Concomitant]
  7. VINCRISTINE [Concomitant]
  8. ADRIAMYCIN PFS [Concomitant]
  9. PREDNISONE [Concomitant]
  10. MULTI-VITAMIN [Concomitant]
  11. FIBERCON [Concomitant]

REACTIONS (2)
  - ACUTE MYELOID LEUKAEMIA [None]
  - GENERAL PHYSICAL HEALTH DETERIORATION [None]
